FAERS Safety Report 26131572 (Version 1)
Quarter: 2025Q4

REPORT INFORMATION
  Report Type: Spontaneous
  Country: US (occurrence: US)
  Receive Date: 20251208
  Receipt Date: 20251208
  Transmission Date: 20260118
  Serious: Yes (Other)
  Sender: BAYER HEALTHCARE PHARMACEUTICALS INC.
  Company Number: US-BAYER-2025A159331

PATIENT
  Age: 39 Year
  Sex: Male

DRUGS (3)
  1. KOVALTRY [Suspect]
     Active Substance: ANTIHEMOPHILIC FACTOR, HUMAN RECOMBINANT
     Indication: Factor VIII deficiency
     Dosage: 1000 IU, PRN INFUSE SLOW IV PUSH: MINOR BLEED: 3080 UNITS (2772-3388) AND MAJOR BLEED: 3850 UNITS (3
     Route: 042
     Dates: start: 202207
  2. KOVALTRY [Suspect]
     Active Substance: ANTIHEMOPHILIC FACTOR, HUMAN RECOMBINANT
     Indication: Factor VIII deficiency
     Dosage: 3000 IU, PRN INFUSE SLOW IV PUSH: MINOR BLEED: 3080 UNITS (2772-3388) AND MAJOR BLEED: 3850 UNITS (3
     Route: 042
     Dates: start: 202207
  3. KOVALTRY [Suspect]
     Active Substance: ANTIHEMOPHILIC FACTOR, HUMAN RECOMBINANT
     Indication: Factor VIII deficiency
     Dosage: ADMINISTERED 1 MINOR DOSE OF KOVALTRY USED.
     Route: 042
     Dates: start: 20251123, end: 20251123

REACTIONS (3)
  - Haemarthrosis [Not Recovered/Not Resolved]
  - Myalgia [Not Recovered/Not Resolved]
  - Muscle contusion [Not Recovered/Not Resolved]

NARRATIVE: CASE EVENT DATE: 20251123
